FAERS Safety Report 18845533 (Version 1)
Quarter: 2021Q1

REPORT INFORMATION
  Report Type: Report from Study
  Country: IL (occurrence: IL)
  Receive Date: 20210204
  Receipt Date: 20210204
  Transmission Date: 20210419
  Serious: Yes (Other)
  Sender: FDA-Public Use
  Company Number: IL-SHIRE-IL201923570

PATIENT
  Sex: Female
  Weight: 70 kg

DRUGS (7)
  1. VELAGLUCERASE ALFA [Suspect]
     Active Substance: VELAGLUCERASE ALFA
     Indication: GAUCHER^S DISEASE
     Dosage: 5 DOSAGE FORM (VIALS), 1X/2WKS
     Route: 042
     Dates: start: 20110402
  2. ACLASTA [Concomitant]
     Active Substance: ZOLEDRONIC ACID
     Indication: PRODUCT USED FOR UNKNOWN INDICATION
  3. VELAGLUCERASE ALFA [Suspect]
     Active Substance: VELAGLUCERASE ALFA
     Dosage: 5 DOSAGE FORM (VIALS), 1X/2WKS
     Route: 042
     Dates: start: 20110402
  4. VELAGLUCERASE ALFA [Suspect]
     Active Substance: VELAGLUCERASE ALFA
     Dosage: 5 DOSAGE FORM (VIALS), 1X/2WKS
     Route: 042
     Dates: start: 20110402
  5. VELAGLUCERASE ALFA [Suspect]
     Active Substance: VELAGLUCERASE ALFA
     Dosage: 5 DOSAGE FORM, 1X/2WKS
     Route: 042
     Dates: start: 20110402
  6. VELAGLUCERASE ALFA [Suspect]
     Active Substance: VELAGLUCERASE ALFA
     Dosage: 5 DOSAGE FORM (VIALS), Q2WEEKS
     Route: 042
     Dates: start: 20110402
  7. PROLOL [PROPRANOLOL HYDROCHLORIDE] [Concomitant]
     Indication: HYPERTENSION

REACTIONS (5)
  - Chest pain [Not Recovered/Not Resolved]
  - Sinus pain [Recovering/Resolving]
  - Chest discomfort [Not Recovered/Not Resolved]
  - SARS-CoV-2 test positive [Unknown]
  - Hypoaesthesia [Not Recovered/Not Resolved]
